FAERS Safety Report 7953864 (Version 4)
Quarter: 2013Q1

REPORT INFORMATION
  Report Type: Report from Study
  Country: US (occurrence: US)
  Receive Date: 20110520
  Receipt Date: 20130125
  Transmission Date: 20140127
  Serious: Yes (Hospitalization, Other)
  Sender: FDA-Public Use
  Company Number: US-ABBOTT-11P-163-0726653-00

PATIENT
  Age: 66 None
  Sex: Female

DRUGS (11)
  1. HUMIRA 40 MG/0.8 ML PEN [Suspect]
     Indication: RHEUMATOID ARTHRITIS
     Dates: end: 20110324
  2. HUMIRA 40 MG/0.8 ML PEN [Suspect]
     Dates: start: 20110404
  3. PREDNISONE [Concomitant]
     Indication: RHEUMATOID ARTHRITIS
  4. SULFASALAZINE [Concomitant]
     Indication: RHEUMATOID ARTHRITIS
  5. NORVASC GENERIC [Concomitant]
     Indication: HYPERTENSION
  6. FOSAMAX [Concomitant]
     Indication: OSTEOARTHRITIS
  7. INFLUENZA [Concomitant]
     Indication: PRODUCT USED FOR UNKNOWN INDICATION
  8. LIDOCAINE [Concomitant]
     Indication: PRODUCT USED FOR UNKNOWN INDICATION
     Dates: start: 20061207, end: 20061207
  9. STEROID [Concomitant]
     Indication: PRODUCT USED FOR UNKNOWN INDICATION
     Dates: start: 20061207, end: 20061207
  10. PREVACID [Concomitant]
     Indication: PRODUCT USED FOR UNKNOWN INDICATION
  11. NAPROSYN [Concomitant]
     Indication: PRODUCT USED FOR UNKNOWN INDICATION

REACTIONS (10)
  - Device dislocation [Recovering/Resolving]
  - Hyperthyroidism [Not Recovered/Not Resolved]
  - Joint crepitation [Recovering/Resolving]
  - Rheumatoid arthritis [Recovered/Resolved]
  - Fungal infection [Unknown]
  - Joint swelling [Unknown]
  - Localised oedema [Unknown]
  - Oedema peripheral [Unknown]
  - Oral candidiasis [Unknown]
  - Drug ineffective [Unknown]
